FAERS Safety Report 25808300 (Version 1)
Quarter: 2025Q3

REPORT INFORMATION
  Report Type: Spontaneous
  Country: EU (occurrence: EU)
  Receive Date: 20250916
  Receipt Date: 20250916
  Transmission Date: 20251021
  Serious: Yes (Death, Hospitalization)
  Sender: MYLAN
  Company Number: EU-STEMLINE THERAPEUTICS, INC-2025-STML-FR003085

PATIENT
  Age: 69 Year
  Sex: Female

DRUGS (3)
  1. POMALIDOMIDE [Suspect]
     Active Substance: POMALIDOMIDE
     Indication: Plasma cell myeloma
  2. DEXAMETHASONE [Suspect]
     Active Substance: DEXAMETHASONE
     Indication: Plasma cell myeloma
  3. SELINEXOR [Suspect]
     Active Substance: SELINEXOR
     Indication: Plasma cell myeloma

REACTIONS (4)
  - Pneumonia [Fatal]
  - Malnutrition [Unknown]
  - Nausea [Recovered/Resolved with Sequelae]
  - Decreased appetite [Unknown]
